FAERS Safety Report 5220914-2 (Version None)
Quarter: 2007Q1

REPORT INFORMATION
  Report Type: 
  Country: None (occurrence: None)
  Receive Date: 20070125
  Receipt Date: 20070125
  Transmission Date: 20070707
  Serious: Yes (Hospitalization)
  Sender: FDA-Public Use
  Company Number: None

PATIENT

DRUGS (11)
  1. DIGOXIN [Suspect]
     Indication: ATRIAL FIBRILLATION
     Dosage: 250 MG PO QD PRIOR TO ADMISSION
  2. COREG [Concomitant]
  3. PREDNISONE [Concomitant]
  4. GLIMEPIRIDE [Concomitant]
  5. KLOR-CON [Concomitant]
  6. AVANDIA [Concomitant]
  7. LASIX [Concomitant]
  8. COUMADIN [Concomitant]
  9. ZAROXOLYN [Concomitant]
  10. ZESTRIL [Concomitant]
  11. AMBIEN [Concomitant]

REACTIONS (1)
  - THERAPEUTIC AGENT TOXICITY [None]
